FAERS Safety Report 4729306-3 (Version None)
Quarter: 2005Q3

REPORT INFORMATION
  Report Type: 
  Country: None (occurrence: None)
  Receive Date: 20050729
  Receipt Date: 20050720
  Transmission Date: 20060218
  Serious: Yes (Hospitalization)
  Sender: FDA-Public Use
  Company Number: PHBS2005IT10656

PATIENT
  Age: 58 Year
  Sex: Male

DRUGS (1)
  1. TORECAN [Suspect]
     Indication: VERTIGO
     Dosage: 6.5 MG, BID
     Route: 048
     Dates: start: 20050711, end: 20050712

REACTIONS (1)
  - TONGUE OEDEMA [None]
